FAERS Safety Report 18375936 (Version 1)
Quarter: 2020Q4

REPORT INFORMATION
  Report Type: Spontaneous
  Country: US (occurrence: US)
  Receive Date: 20201004
  Receipt Date: 20201004
  Transmission Date: 20210114
  Serious: No
  Sender: FDA-Public Use
  Company Number: None

PATIENT
  Age: 4 Decade
  Sex: Male

DRUGS (7)
  1. IMMUNOGLOBULINS, INTRAVENOUS [Suspect]
     Active Substance: HUMAN IMMUNOGLOBULIN G
     Indication: COVID-19
     Route: 042
     Dates: start: 2020
  2. HYDROXYCHLOROQUINE [Suspect]
     Active Substance: HYDROXYCHLOROQUINE
     Indication: COVID-19
     Route: 048
     Dates: start: 2020
  3. OSELTAMIVIR [Suspect]
     Active Substance: OSELTAMIVIR
     Indication: COVID-19
     Route: 048
     Dates: start: 2020
  4. INTERFERON BETA-1A [Suspect]
     Active Substance: INTERFERON BETA-1A
     Indication: COVID-19
     Dosage: ?          OTHER DOSE:12000000 UNITS;?
     Route: 058
     Dates: start: 2020
  5. RIBAVIRIN. [Suspect]
     Active Substance: RIBAVIRIN
     Indication: COVID-19
     Route: 048
     Dates: start: 2020
  6. TOCILIZUMAB. [Suspect]
     Active Substance: TOCILIZUMAB
     Route: 042
     Dates: start: 2020
  7. LOPINAVIR-RITONAVIR [Suspect]
     Active Substance: LOPINAVIR\RITONAVIR
     Indication: COVID-19
     Dosage: ?          OTHER DOSE:200/50 MG;?
     Route: 048

REACTIONS (7)
  - General physical health deterioration [None]
  - Disease progression [None]
  - Bacterial infection [None]
  - Cytokine release syndrome [None]
  - Off label use [None]
  - Dyspnoea [None]
  - Oxygen saturation decreased [None]
